FAERS Safety Report 9418063 (Version 1)
Quarter: 2013Q3

REPORT INFORMATION
  Report Type: Spontaneous
  Country: JP (occurrence: JP)
  Receive Date: 20130724
  Receipt Date: 20130724
  Transmission Date: 20140515
  Serious: Yes (Other)
  Sender: FDA-Public Use
  Company Number: JP-SANOFI-AVENTIS-2013SA072763

PATIENT
  Age: 69 Year
  Sex: Male

DRUGS (3)
  1. ELPLAT [Suspect]
     Indication: COLON CANCER
     Route: 041
  2. CALCIUM LEVOFOLINATE [Concomitant]
  3. 5-FU [Concomitant]
     Dosage: BOLUS THEN CONTINUOUS INFUSION

REACTIONS (2)
  - Meningitis aseptic [Unknown]
  - Mental disorder [Unknown]
